FAERS Safety Report 16843834 (Version 1)
Quarter: 2019Q4

REPORT INFORMATION
  Report Type: Spontaneous
  Country: US (occurrence: US)
  Receive Date: 20190923
  Receipt Date: 20190923
  Transmission Date: 20200122
  Serious: Yes (Hospitalization)
  Sender: FDA-Public Use
  Company Number: None

PATIENT
  Age: 76 Year
  Sex: Female

DRUGS (11)
  1. METOPROLOL ER 50MG [Concomitant]
  2. ASPIRIN. [Concomitant]
     Active Substance: ASPIRIN
  3. LOSARTAN 100MG [Concomitant]
     Active Substance: LOSARTAN
  4. GABAPENTIN 600MG [Concomitant]
     Active Substance: GABAPENTIN
  5. LANTUS [Concomitant]
     Active Substance: INSULIN GLARGINE
  6. LOKELMA [Suspect]
     Active Substance: SODIUM ZIRCONIUM CYCLOSILICATE
     Indication: HYPERKALAEMIA
     Route: 048
     Dates: start: 20190820, end: 20190909
  7. AMLODIPINE [Concomitant]
     Active Substance: AMLODIPINE BESYLATE
  8. OMEPRAZOLE 40MG [Concomitant]
     Active Substance: OMEPRAZOLE
  9. LEVOTHYROXINE 0.05 MG [Concomitant]
  10. ROSUVASTATIN 40MG [Concomitant]
     Active Substance: ROSUVASTATIN
  11. HUMALOG [Concomitant]
     Active Substance: INSULIN LISPRO

REACTIONS (3)
  - Hypokalaemia [None]
  - Cardiac failure congestive [None]
  - Asthenia [None]

NARRATIVE: CASE EVENT DATE: 20190909
